FAERS Safety Report 5759398-4 (Version None)
Quarter: 2008Q2

REPORT INFORMATION
  Report Type: 
  Country: None (occurrence: None)
  Receive Date: 20080604
  Receipt Date: 20080604
  Transmission Date: 20081010
  Serious: No
  Sender: FDA-Public Use
  Company Number: None

PATIENT
  Sex: Female
  Weight: 86.1834 kg

DRUGS (1)
  1. TOPAMAX [Suspect]
     Indication: COMPLICATED MIGRAINE
     Dosage: 1 PILL EVERY NIGHT DAILY 047

REACTIONS (2)
  - ANGLE CLOSURE GLAUCOMA [None]
  - VISUAL DISTURBANCE [None]
